FAERS Safety Report 8319330-6 (Version None)
Quarter: 2012Q2

REPORT INFORMATION
  Report Type: 
  Country: None (occurrence: None)
  Receive Date: 20120426
  Receipt Date: 20120426
  Transmission Date: 20120825
  Serious: Yes (Hospitalization)
  Sender: FDA-Public Use
  Company Number: None

PATIENT
  Age: 28 Year
  Sex: Male
  Weight: 89.5 kg

DRUGS (1)
  1. CLONAZEPAM [Suspect]
     Indication: CONVULSION
     Dosage: 1 MG BID PO
     Route: 048
     Dates: start: 20120409, end: 20120421

REACTIONS (10)
  - CONVULSION [None]
  - CONDITION AGGRAVATED [None]
  - SNORING [None]
  - REFUSAL OF TREATMENT BY PATIENT [None]
  - DYSARTHRIA [None]
  - DIPLOPIA [None]
  - GAIT DISTURBANCE [None]
  - LOSS OF CONSCIOUSNESS [None]
  - FEELING DRUNK [None]
  - HEAD INJURY [None]
